FAERS Safety Report 9505928 (Version 1)
Quarter: 2013Q1

REPORT INFORMATION
  Report Type: Spontaneous
  Country: US (occurrence: None)
  Receive Date: 20130212
  Receipt Date: 20130212
  Transmission Date: 20140127
  Serious: Yes (Other)
  Sender: FDA-Public Use
  Company Number: 2012P1064471

PATIENT
  Age: 24 Year
  Sex: Female

DRUGS (5)
  1. MYORISAN 40 MG [Suspect]
     Route: 048
     Dates: start: 20121009, end: 20121107
  2. AMNESTEEM [Suspect]
  3. ORAL CONTRACEPTIVES [Concomitant]
  4. CLARAVIS [Suspect]
     Dates: start: 20120501
  5. CLARAVIS 30MG  (NO PREF. NAME) [Suspect]
     Dates: start: 20120710

REACTIONS (2)
  - Vaginal haemorrhage [None]
  - Pregnancy test false positive [None]
